FAERS Safety Report 7225351-7 (Version None)
Quarter: 2011Q1

REPORT INFORMATION
  Report Type: 
  Country: None (occurrence: None)
  Receive Date: 20110113
  Receipt Date: 20101223
  Transmission Date: 20110831
  Serious: No
  Sender: FDA-Public Use
  Company Number: US-B.I. PHARMACEUTICALS,INC./RIDGEFIELD-2010-BP-15419BP

PATIENT
  Sex: Female

DRUGS (8)
  1. PRADAXA [Suspect]
     Indication: ATRIAL FIBRILLATION
     Dosage: 300 MG
     Route: 048
     Dates: start: 20101207
  2. MULTI-VITAMIN [Concomitant]
     Route: 048
  3. DOXYCYCLINE [Concomitant]
     Indication: DENTAL CARIES
  4. PRAVASTATIN [Concomitant]
     Indication: BLOOD CHOLESTEROL
     Dosage: 20 MG
     Route: 048
  5. METANX [Concomitant]
     Route: 048
  6. ASCORBIC ACID [Concomitant]
     Route: 048
  7. DOXYCYCLINE [Concomitant]
     Indication: VIRAL INFECTION
     Dosage: 20 MG
     Route: 048
  8. GLUCOSAMINE [Concomitant]
     Route: 048

REACTIONS (2)
  - DIZZINESS [None]
  - BLOOD URINE PRESENT [None]
